FAERS Safety Report 17579747 (Version 1)
Quarter: 2020Q1

REPORT INFORMATION
  Report Type: Spontaneous
  Country: US (occurrence: US)
  Receive Date: 20200325
  Receipt Date: 20200325
  Transmission Date: 20200409
  Serious: No
  Sender: FDA-Public Use
  Company Number: US-009507513-2003USA003479

PATIENT
  Age: 58 Year
  Sex: Female

DRUGS (3)
  1. ZYRTEC [Concomitant]
     Active Substance: CETIRIZINE HYDROCHLORIDE
     Dosage: UNK
  2. PREDNISONE. [Concomitant]
     Active Substance: PREDNISONE
     Dosage: UNK
  3. SINGULAIR [Suspect]
     Active Substance: MONTELUKAST SODIUM
     Indication: SEASONAL ALLERGY
     Dosage: ONCE A DAY FOR AROUND 8 WEEKS OUT OF THE YEAR
     Route: 048
     Dates: start: 2015

REACTIONS (3)
  - Feeling abnormal [Not Recovered/Not Resolved]
  - Nasal oedema [Not Recovered/Not Resolved]
  - Eustachian tube obstruction [Not Recovered/Not Resolved]

NARRATIVE: CASE EVENT DATE: 202003
